FAERS Safety Report 14648687 (Version 1)
Quarter: 2018Q1

REPORT INFORMATION
  Report Type: Spontaneous
  Country: US (occurrence: US)
  Receive Date: 20180315
  Receipt Date: 20180315
  Transmission Date: 20180509
  Serious: No
  Sender: FDA-Public Use
  Company Number: None

PATIENT
  Age: 11 Year
  Sex: Male
  Weight: 94.5 kg

DRUGS (5)
  1. TRAZODONE [Suspect]
     Active Substance: TRAZODONE HYDROCHLORIDE
     Indication: SLEEP DISORDER
     Dosage: ?          QUANTITY:2.5 TABLET(S);?
     Route: 048
     Dates: start: 20180219
  2. CLONIDINE. [Concomitant]
     Active Substance: CLONIDINE
  3. FLUOXETINE [Concomitant]
     Active Substance: FLUOXETINE HYDROCHLORIDE
  4. METFORMIN [Concomitant]
     Active Substance: METFORMIN HYDROCHLORIDE
  5. MELATONIN [Concomitant]
     Active Substance: MELATONIN

REACTIONS (3)
  - Drug ineffective [None]
  - Insomnia [None]
  - Product quality issue [None]

NARRATIVE: CASE EVENT DATE: 20180314
